FAERS Safety Report 4415086-8 (Version None)
Quarter: 2004Q3

REPORT INFORMATION
  Report Type: 
  Country: None (occurrence: None)
  Receive Date: 20040723
  Receipt Date: 20040714
  Transmission Date: 20050211
  Serious: No
  Sender: FDA-Public Use
  Company Number: CART-10168

PATIENT
  Age: 25 Year
  Sex: Male

DRUGS (1)
  1. CARTICEL [Suspect]
     Indication: ARTHROPATHY
     Dosage: 1 NA ONCE IS
     Dates: start: 20001024, end: 20041024

REACTIONS (13)
  - ARTHRALGIA [None]
  - ARTHROPATHY [None]
  - CHONDROMALACIA [None]
  - FIBROSIS [None]
  - JOINT LOCK [None]
  - JOINT SWELLING [None]
  - LIGAMENT INJURY [None]
  - LIGAMENT LAXITY [None]
  - MUSCULAR WEAKNESS [None]
  - PATELLOFEMORAL PAIN SYNDROME [None]
  - POST PROCEDURAL COMPLICATION [None]
  - SCAR [None]
  - SYNOVIAL DISORDER [None]
